FAERS Safety Report 21604357 (Version 2)
Quarter: 2022Q4

REPORT INFORMATION
  Report Type: Spontaneous
  Country: PL (occurrence: PL)
  Receive Date: 20221116
  Receipt Date: 20221118
  Transmission Date: 20230113
  Serious: Yes (Death, Other)
  Sender: FDA-Public Use
  Company Number: PL-002147023-NVSC2022PL256753

PATIENT
  Age: 71 Year
  Sex: Male

DRUGS (1)
  1. METHOTREXATE [Suspect]
     Active Substance: METHOTREXATE
     Indication: Product used for unknown indication
     Dosage: UNK UNK, QD (DAILY)
     Route: 065

REACTIONS (8)
  - Accidental overdose [Fatal]
  - Acute kidney injury [Fatal]
  - Cholestasis [Fatal]
  - Tubulointerstitial nephritis [Fatal]
  - Pancytopenia [Fatal]
  - Toxic epidermal necrolysis [Fatal]
  - Septic shock [Fatal]
  - Inappropriate schedule of product administration [Fatal]
